FAERS Safety Report 8764707 (Version 3)
Quarter: 2012Q4

REPORT INFORMATION
  Report Type: 
  Country: US (occurrence: US)
  Receive Date: 20120831
  Receipt Date: 20121220
  Transmission Date: 20130627
  Serious: No
  Sender: FDA-Public Use
  Company Number: US-ASTRAZENECA-2012SE59958

PATIENT
  Age: 68 Year
  Sex: Male

DRUGS (4)
  1. CRESTOR [Suspect]
     Route: 048
  2. NEXIUM [Suspect]
     Route: 048
  3. TOPROL XL [Suspect]
     Route: 048
  4. FERROUS GLUCONATE [Concomitant]

REACTIONS (4)
  - Type 2 diabetes mellitus [Unknown]
  - Anaemia [Unknown]
  - Adverse event [Unknown]
  - Malaise [Unknown]
